FAERS Safety Report 9484818 (Version 1)
Quarter: 2013Q3

REPORT INFORMATION
  Report Type: Spontaneous
  Country: JP (occurrence: JP)
  Receive Date: 20130828
  Receipt Date: 20130828
  Transmission Date: 20140515
  Serious: Yes (Hospitalization)
  Sender: FDA-Public Use
  Company Number: JP-GLAXOSMITHKLINE-B0913590A

PATIENT
  Age: 81 Year
  Sex: Male

DRUGS (5)
  1. PAXIL [Suspect]
     Indication: DEPRESSION
     Dosage: 20MG PER DAY
     Route: 048
     Dates: start: 20120615, end: 20130725
  2. CADUET [Concomitant]
     Indication: HYPERTENSION
     Dosage: 1IUAX PER DAY
     Route: 048
     Dates: start: 20111121
  3. ZETIA [Concomitant]
     Indication: LIPIDS ABNORMAL
     Dosage: 10MG PER DAY
     Route: 048
     Dates: start: 20111121
  4. URIEF [Concomitant]
     Indication: BENIGN PROSTATIC HYPERPLASIA
     Dosage: 4MG TWICE PER DAY
     Route: 048
     Dates: start: 20111121
  5. EQUA [Concomitant]
     Indication: DIABETES MELLITUS
     Dosage: 50MG TWICE PER DAY
     Route: 048
     Dates: start: 20111121

REACTIONS (6)
  - Akinesia [Unknown]
  - Unresponsive to stimuli [Unknown]
  - Waxy flexibility [Recovered/Resolved]
  - Communication disorder [Unknown]
  - Staring [Unknown]
  - Mutism [Unknown]
